FAERS Safety Report 23176526 (Version 1)
Quarter: 2023Q4

REPORT INFORMATION
  Report Type: Spontaneous
  Country: RU (occurrence: RU)
  Receive Date: 20231113
  Receipt Date: 20231113
  Transmission Date: 20240110
  Serious: Yes (Death, Hospitalization, Other)
  Sender: FDA-Public Use
  Company Number: RU-EPICPHARMA-RU-2023EPCLIT01750

PATIENT
  Age: 80 Year

DRUGS (8)
  1. SOTALOL HYDROCHLORIDE [Suspect]
     Active Substance: SOTALOL HYDROCHLORIDE
     Indication: Product use in unapproved indication
     Route: 065
     Dates: start: 2020
  2. ETHACIZINE [Suspect]
     Active Substance: ETHACIZINE
     Indication: Product used for unknown indication
     Route: 065
     Dates: start: 2020
  3. PERINDOPRIL [Concomitant]
     Active Substance: PERINDOPRIL
     Indication: Product used for unknown indication
     Route: 065
  4. TORSEMIDE [Concomitant]
     Active Substance: TORSEMIDE
     Indication: Product used for unknown indication
     Route: 065
  5. SPIRONOLACTONE [Concomitant]
     Active Substance: SPIRONOLACTONE
     Indication: Product used for unknown indication
     Route: 065
  6. ASPIRIN [Concomitant]
     Active Substance: ASPIRIN
     Indication: Product used for unknown indication
     Route: 065
  7. ATORVASTATIN [Concomitant]
     Active Substance: ATORVASTATIN
     Indication: Product used for unknown indication
     Route: 065
  8. AMIODARONE [Concomitant]
     Active Substance: AMIODARONE
     Indication: Product used for unknown indication
     Route: 042
     Dates: start: 20220914

REACTIONS (3)
  - Ventricular tachycardia [Fatal]
  - Myocardial infarction [Fatal]
  - Drug interaction [Unknown]

NARRATIVE: CASE EVENT DATE: 20200101
